FAERS Safety Report 10688450 (Version 5)
Quarter: 2015Q2

REPORT INFORMATION
  Report Type: Report from Study
  Country: JP (occurrence: JP)
  Receive Date: 20150102
  Receipt Date: 20150605
  Transmission Date: 20150821
  Serious: Yes (Hospitalization)
  Sender: FDA-Public Use
  Company Number: JP-NAPPMUNDI-GBR-2014-0024767

PATIENT
  Age: 85 Year
  Sex: Female
  Weight: 43 kg

DRUGS (36)
  1. MAGMITT [Concomitant]
     Active Substance: MAGNESIUM OXIDE
     Dosage: 1500 MG, DAILY
     Route: 048
     Dates: start: 20140422, end: 20140514
  2. BTDS PATCH [Suspect]
     Active Substance: BUPRENORPHINE
     Dosage: 5 MCG, Q1H
     Route: 062
     Dates: start: 20130627, end: 20140304
  3. AZUNOL                             /00317302/ [Concomitant]
     Indication: STOMATITIS
     Dosage: UNK, Q.V. SEVERAL TIMES A DAY
     Route: 065
     Dates: start: 2010
  4. FENAZOL [Concomitant]
     Active Substance: FLUFENAMIC ACID
     Indication: HERPES ZOSTER
     Dosage: UNK, Q.V. ONCE OR TWICE A DAY
     Route: 061
     Dates: start: 20130808, end: 20130815
  5. MEIACT [Concomitant]
     Active Substance: CEFDITOREN PIVOXIL
     Indication: STOMATITIS
     Dosage: 300 MG, DAILY
     Route: 048
     Dates: start: 20131204, end: 20131209
  6. SENNOSIDE                          /00571901/ [Concomitant]
     Active Substance: SENNOSIDES A AND B
     Indication: CONSTIPATION
     Dosage: 24 MG, ONCE A TIME PRN
     Route: 048
     Dates: start: 20140122
  7. GASMOTIN [Concomitant]
     Active Substance: MOSAPRIDE CITRATE
     Indication: ENDOSCOPY
     Dosage: 5 MG, DAILY
     Route: 048
     Dates: start: 20140416, end: 20140416
  8. LOXONIN [Concomitant]
     Active Substance: LOXOPROFEN SODIUM
     Dosage: 60 MG, ONCE A TIME PRN
     Route: 048
     Dates: start: 20140312, end: 20140405
  9. BTDS PATCH [Suspect]
     Active Substance: BUPRENORPHINE
     Indication: ANALGESIC THERAPY
     Dosage: 5 MCG, Q1H
     Route: 062
     Dates: start: 20140526, end: 20140609
  10. BTDS PATCH [Suspect]
     Active Substance: BUPRENORPHINE
     Dosage: 10 MCG, Q1H
     Route: 062
     Dates: start: 20140414, end: 20140526
  11. MOHRUS L [Concomitant]
     Active Substance: KETOPROFEN
     Indication: BACK PAIN
     Dosage: 1 DF, DAILY
     Route: 061
     Dates: start: 2010
  12. MUCODYNE [Concomitant]
     Active Substance: CARBOCYSTEINE
     Dosage: UNK, TID PRN
     Route: 048
     Dates: start: 20140309, end: 20140331
  13. ASTAT [Concomitant]
     Indication: HERPES ZOSTER
     Dosage: UNK, Q.V. ONCE A DAY
     Route: 061
     Dates: start: 20130815, end: 20130829
  14. FLOMOX [Concomitant]
     Active Substance: CEFCAPENE PIVOXIL HYDROCHLORIDE HYDRATE
     Indication: STOMATITIS
     Dosage: 300 MG, DAILY
     Route: 048
     Dates: start: 20131017, end: 20131021
  15. CEFZON [Concomitant]
     Active Substance: CEFDINIR
     Indication: STOMATITIS
     Dosage: 300 MG, DAILY
     Route: 048
     Dates: start: 20131220, end: 20131224
  16. BISOLVON [Concomitant]
     Active Substance: BROMHEXINE HYDROCHLORIDE
     Dosage: UNK, TID PRN
     Route: 048
     Dates: start: 20140309, end: 20140331
  17. PRIMPERAN [Concomitant]
     Active Substance: METOCLOPRAMIDE HYDROCHLORIDE
     Indication: PROPHYLAXIS
     Dosage: 5 MG, ONCE A WEEK PRN
     Route: 048
     Dates: start: 20130627, end: 20130704
  18. METHYCOBAL [Concomitant]
     Active Substance: METHYLCOBALAMIN
     Indication: HERPES ZOSTER
     Dosage: 750 MCG, DAILY
     Route: 048
     Dates: start: 20130808, end: 20130829
  19. ANTEBATE [Concomitant]
     Active Substance: BETAMETHASONE DIPROPIONATE
     Indication: PRODUCT USED FOR UNKNOWN INDICATION
     Dosage: UNK, PRN
     Route: 061
     Dates: start: 20140201, end: 20140320
  20. MAGMITT [Concomitant]
     Active Substance: MAGNESIUM OXIDE
     Dosage: 990 MG, DAILY
     Route: 048
     Dates: start: 20140413, end: 20140421
  21. PROSTANDIN                         /00501501/ [Concomitant]
     Dosage: UNK, PRN
     Route: 061
     Dates: start: 20140307, end: 20140320
  22. GASCON [Concomitant]
     Active Substance: DIMETHICONE
     Indication: ENDOSCOPY
     Dosage: 200 MG, DAILY
     Route: 048
     Dates: start: 20140416, end: 20140416
  23. LAXOBERON [Concomitant]
     Active Substance: SODIUM PICOSULFATE
     Indication: ENDOSCOPY
     Dosage: 5 MG, DAILY
     Route: 048
     Dates: start: 20140416, end: 20140416
  24. BTDS PATCH [Suspect]
     Active Substance: BUPRENORPHINE
     Dosage: 5 MCG, Q1H
     Route: 062
     Dates: start: 20140310, end: 20140414
  25. RHYTHMY [Concomitant]
     Active Substance: RILMAZAFONE HYDROCHLORIDE
     Indication: INSOMNIA
     Dosage: 2 MG, DAILY
     Route: 048
     Dates: start: 2010
  26. FAMVIR [Concomitant]
     Active Substance: FAMCICLOVIR
     Indication: HERPES ZOSTER
     Dosage: 500 MG, DAILY
     Route: 048
     Dates: start: 20130808, end: 20130814
  27. NIFLEC [Concomitant]
     Active Substance: BICARBONATE ION\POLYETHYLENE GLYCOLS\POTASSIUM CATION\SODIUM CHLORIDE\SODIUM SULFATE ANHYDROUS
     Indication: ENDOSCOPY
     Dosage: 1 DF, DAILY
     Route: 048
     Dates: start: 20140416, end: 20140416
  28. PRIMPERAN [Concomitant]
     Active Substance: METOCLOPRAMIDE HYDROCHLORIDE
     Dosage: 15 MG, DAILY
     Route: 048
     Dates: start: 20140420, end: 20140514
  29. LOXONIN [Concomitant]
     Active Substance: LOXOPROFEN SODIUM
     Dosage: 60 MG, ONCE A TIME PRN
     Route: 048
     Dates: start: 20131220, end: 20131230
  30. SAWACILLIN [Concomitant]
     Active Substance: AMOXICILLIN
     Dosage: 7.5 G, DAILY
     Route: 048
     Dates: start: 20140314, end: 20140320
  31. CALONAL [Concomitant]
     Active Substance: ACETAMINOPHEN
     Indication: HERPES ZOSTER
     Dosage: 400 MG, ONCE A TIME PRN
     Route: 048
     Dates: start: 20130808, end: 20130829
  32. BARAMYCIN                          /00324701/ [Concomitant]
     Indication: HERPES ZOSTER
     Dosage: UNK, Q. V. ONCE OT TWICE A DAY
     Route: 061
     Dates: start: 20130808, end: 20130815
  33. LAXOBERON [Concomitant]
     Active Substance: SODIUM PICOSULFATE
     Dosage: 10 DF, DAILY
     Route: 048
     Dates: start: 20140424, end: 20140430
  34. MYSLEE [Concomitant]
     Active Substance: ZOLPIDEM TARTRATE
     Indication: INSOMNIA
     Dosage: 5 MG, DAILY
     Route: 048
     Dates: start: 20140311
  35. CINAL [Concomitant]
     Active Substance: ASCORBIC ACID\CALCIUM PANTOTHENATE
     Dosage: 3 G, DAILY
     Route: 048
     Dates: start: 20140414, end: 20140504
  36. VOALLA [Concomitant]
     Indication: HERPES ZOSTER
     Dosage: UNK, Q.V. TWICE A DAY
     Route: 061
     Dates: start: 20130815, end: 20130829

REACTIONS (13)
  - Constipation [Recovering/Resolving]
  - Nausea [Recovered/Resolved]
  - Stomatitis [Recovered/Resolved]
  - Stomatitis [Recovered/Resolved]
  - Malaise [Recovering/Resolving]
  - Drug eruption [Recovered/Resolved]
  - Insomnia [Recovering/Resolving]
  - Abdominal discomfort [Recovered/Resolved]
  - Bone cancer [Recovered/Resolved]
  - Nausea [Recovered/Resolved]
  - Constipation [Recovered/Resolved]
  - Weight decreased [Not Recovered/Not Resolved]
  - Stomatitis [Recovered/Resolved]

NARRATIVE: CASE EVENT DATE: 20130629
